FAERS Safety Report 15669542 (Version 1)
Quarter: 2018Q4

REPORT INFORMATION
  Report Type: Spontaneous
  Country: CA (occurrence: CA)
  Receive Date: 20181129
  Receipt Date: 20181129
  Transmission Date: 20190205
  Serious: Yes (Disabling, Other)
  Sender: FDA-Public Use
  Company Number: CA-ALVOGEN-2018-ALVOGEN-097869

PATIENT
  Sex: Male

DRUGS (2)
  1. TENORETIC [Suspect]
     Active Substance: ATENOLOL\CHLORTHALIDONE
     Indication: BLOOD PRESSURE ABNORMAL
     Route: 048
  2. ESOMEPRAZOLE MAGNESIUM. [Suspect]
     Active Substance: ESOMEPRAZOLE MAGNESIUM
     Indication: ABDOMINAL DISCOMFORT
     Route: 048

REACTIONS (10)
  - Movement disorder [Unknown]
  - Headache [Unknown]
  - Hypertension [Unknown]
  - Body temperature decreased [Unknown]
  - Pruritus [Unknown]
  - Pain [Unknown]
  - Gait disturbance [Unknown]
  - Tooth loss [Unknown]
  - Intervertebral disc disorder [Unknown]
  - Peripheral swelling [Unknown]
